FAERS Safety Report 25797652 (Version 1)
Quarter: 2025Q3

REPORT INFORMATION
  Report Type: Spontaneous
  Country: US (occurrence: US)
  Receive Date: 20250912
  Receipt Date: 20250912
  Transmission Date: 20251021
  Serious: No
  Sender: MYLAN
  Company Number: US-MYLANLABS-2025M1075509

PATIENT
  Age: 65 Year
  Sex: Female

DRUGS (20)
  1. ATORVASTATIN [Suspect]
     Active Substance: ATORVASTATIN
     Indication: Product used for unknown indication
  2. ATORVASTATIN [Suspect]
     Active Substance: ATORVASTATIN
     Route: 065
  3. ATORVASTATIN [Suspect]
     Active Substance: ATORVASTATIN
     Route: 065
  4. ATORVASTATIN [Suspect]
     Active Substance: ATORVASTATIN
  5. RECORLEV [Suspect]
     Active Substance: LEVOKETOCONAZOLE
     Indication: Product used for unknown indication
     Dosage: 150 MILLIGRAM, BID (TWO TIMES PER DAY)
  6. RECORLEV [Suspect]
     Active Substance: LEVOKETOCONAZOLE
     Dosage: 150 MILLIGRAM, BID (TWO TIMES PER DAY)
     Route: 048
  7. RECORLEV [Suspect]
     Active Substance: LEVOKETOCONAZOLE
     Dosage: 150 MILLIGRAM, BID (TWO TIMES PER DAY)
     Route: 048
  8. RECORLEV [Suspect]
     Active Substance: LEVOKETOCONAZOLE
     Dosage: 150 MILLIGRAM, BID (TWO TIMES PER DAY)
  9. TOPAMAX [Suspect]
     Active Substance: TOPIRAMATE
     Indication: Product used for unknown indication
  10. TOPAMAX [Suspect]
     Active Substance: TOPIRAMATE
     Route: 065
  11. TOPAMAX [Suspect]
     Active Substance: TOPIRAMATE
     Route: 065
  12. TOPAMAX [Suspect]
     Active Substance: TOPIRAMATE
  13. VITAMIN D [Suspect]
     Active Substance: VITAMIN D NOS
     Indication: Product used for unknown indication
  14. VITAMIN D [Suspect]
     Active Substance: VITAMIN D NOS
  15. VITAMIN D [Suspect]
     Active Substance: VITAMIN D NOS
     Route: 065
  16. VITAMIN D [Suspect]
     Active Substance: VITAMIN D NOS
     Route: 065
  17. VITAMIN D [Suspect]
     Active Substance: VITAMIN D NOS
  18. VITAMIN D [Suspect]
     Active Substance: VITAMIN D NOS
  19. VITAMIN D [Suspect]
     Active Substance: VITAMIN D NOS
     Route: 065
  20. VITAMIN D [Suspect]
     Active Substance: VITAMIN D NOS
     Route: 065

REACTIONS (2)
  - Hepatic enzyme increased [Unknown]
  - Blood potassium increased [Not Recovered/Not Resolved]
